FAERS Safety Report 6550579-9 (Version None)
Quarter: 2010Q1

REPORT INFORMATION
  Report Type: 
  Country: None (occurrence: None)
  Receive Date: 20100122
  Receipt Date: 20100122
  Transmission Date: 20100710
  Serious: Yes (Other)
  Sender: FDA-Public Use
  Company Number: None

PATIENT
  Age: 15 Year
  Sex: Female
  Weight: 54.4316 kg

DRUGS (1)
  1. CEFACLOR [Suspect]
     Indication: SINUSITIS
     Dosage: 500 MG TID PO (1ST DOSE 09/14/2009 PM; LAST DOSE 09/21/2009 NOON)
     Route: 048

REACTIONS (1)
  - CONVULSION [None]
